FAERS Safety Report 7578204-9 (Version None)
Quarter: 2011Q2

REPORT INFORMATION
  Report Type: 
  Country: None (occurrence: None)
  Receive Date: 20110628
  Receipt Date: 20110621
  Transmission Date: 20111010
  Serious: Yes (Death)
  Sender: FDA-Public Use
  Company Number: A0933287A

PATIENT
  Age: 54 Year
  Sex: Male

DRUGS (7)
  1. OXYCONTIN [Concomitant]
  2. TYLENOL-500 [Concomitant]
  3. VOTRIENT [Suspect]
     Dosage: 800MG PER DAY
     Route: 048
     Dates: start: 20110315
  4. COLACE [Concomitant]
  5. SENNA [Concomitant]
  6. LACTULOSE [Concomitant]
  7. HYDROMORPHONE HCL [Concomitant]

REACTIONS (1)
  - DEATH [None]
